FAERS Safety Report 12379888 (Version 1)
Quarter: 2016Q2

REPORT INFORMATION
  Report Type: Spontaneous
  Country: PT (occurrence: PT)
  Receive Date: 20160518
  Receipt Date: 20160518
  Transmission Date: 20160815
  Serious: Yes (Hospitalization, Other)
  Sender: FDA-Public Use
  Company Number: PT-009507513-1605PRT007990

PATIENT
  Age: 25 Year
  Sex: Male

DRUGS (12)
  1. METHENOLONE ACETATE [Suspect]
     Active Substance: METHENOLONE ACETATE
     Dosage: 200 MG/DAY (TWICE A WEEK)
  2. DROMOSTANOLONE PROPIONATE [Suspect]
     Active Substance: DROMOSTANOLONE PROPIONATE
     Dosage: 200 MG/DAY (THRICE A WEEK)
  3. BOLDENONE UNDECYLENATE [Suspect]
     Active Substance: BOLDENONE
     Dosage: 400 MG/DAY (TWICE A WEEK)
  4. NANDROLONE DECANOATE. [Suspect]
     Active Substance: NANDROLONE DECANOATE
     Dosage: 600 MG, QD (TWICE A WEEK)
  5. SOMATROPIN [Suspect]
     Active Substance: SOMATROPIN
     Dosage: 10 IU, QD
  6. TESTOSTERONE PROPIONATE. [Suspect]
     Active Substance: TESTOSTERONE PROPIONATE
     Dosage: 100 MG/DAY (THRICE A WEEK)
  7. OXANDROLONE. [Suspect]
     Active Substance: OXANDROLONE
     Dosage: 40 MG, QD
  8. CLENBUTEROL [Suspect]
     Active Substance: CLENBUTEROL
     Dosage: 0.08 MG, QD
  9. TESTOSTERONE CYPIONATE. [Suspect]
     Active Substance: TESTOSTERONE CYPIONATE
     Dosage: 400 MG/DAY (TWICE A WEEK)
  10. TRENBOLONE ACETATE [Suspect]
     Active Substance: TRENBOLONE ACETATE
     Dosage: 200 MG/DAY (THRICE A WEEK)
  11. MESTEROLONE [Suspect]
     Active Substance: MESTEROLONE
     Dosage: 50 MG, QD
  12. STANOZOLOL [Suspect]
     Active Substance: STANOZOLOL
     Dosage: 100 MG/DAY (THRICE A WEEK)

REACTIONS (2)
  - Acute myocardial infarction [Recovered/Resolved]
  - Product use issue [Unknown]
